FAERS Safety Report 19688035 (Version 1)
Quarter: 2021Q3

REPORT INFORMATION
  Report Type: Report from Study
  Country: None (occurrence: US)
  Receive Date: 20210812
  Receipt Date: 20210812
  Transmission Date: 20211014
  Serious: Yes (Other)
  Sender: FDA-Public Use
  Company Number: US-ABBVIE-21K-163-3970888-00

PATIENT
  Sex: Male
  Weight: 121.67 kg

DRUGS (2)
  1. COVID?19 VACCINE [Concomitant]
     Indication: COVID-19 IMMUNISATION
     Dosage: JOHNSON AND JOHNSON
     Route: 030
     Dates: start: 202103, end: 202103
  2. HUMIRA [Suspect]
     Active Substance: ADALIMUMAB
     Indication: PSORIASIS
     Dosage: CITRATE FREE
     Route: 058
     Dates: start: 202104

REACTIONS (6)
  - Skin irritation [Not Recovered/Not Resolved]
  - Postoperative wound infection [Recovering/Resolving]
  - Skin discolouration [Not Recovered/Not Resolved]
  - Wound [Recovering/Resolving]
  - Psoriasis [Not Recovered/Not Resolved]
  - Cyst [Recovering/Resolving]

NARRATIVE: CASE EVENT DATE: 2021
